FAERS Safety Report 7247189-7 (Version None)
Quarter: 2011Q1

REPORT INFORMATION
  Report Type: 
  Country: None (occurrence: None)
  Receive Date: 20110127
  Receipt Date: 20110118
  Transmission Date: 20110831
  Serious: Yes (Other)
  Sender: FDA-Public Use
  Company Number: US-JNJFOC-20101207708

PATIENT
  Sex: Female
  Weight: 52.62 kg

DRUGS (2)
  1. REMICADE [Suspect]
     Indication: CROHN'S DISEASE
     Route: 042
  2. REMICADE [Suspect]
     Dosage: 2ND INFUSION
     Route: 042

REACTIONS (7)
  - LUPUS-LIKE SYNDROME [None]
  - RASH [None]
  - SWELLING FACE [None]
  - ARTHRALGIA [None]
  - INFUSION RELATED REACTION [None]
  - FLUSHING [None]
  - ERYTHEMA [None]
